FAERS Safety Report 14762279 (Version 1)
Quarter: 2018Q2

REPORT INFORMATION
  Report Type: Spontaneous
  Country: US (occurrence: US)
  Receive Date: 20180416
  Receipt Date: 20180416
  Transmission Date: 20180711
  Serious: No
  Sender: FDA-Public Use
  Company Number: US-BION-006798

PATIENT
  Age: 73 Year
  Sex: Female
  Weight: 55 kg

DRUGS (4)
  1. BAYER CHEWABLE ASPIRIN 81MG ORANGE TABLE [Concomitant]
     Dosage: 1 PER DAY AT DOCTOR DIRECTION
  2. ALEVE [Suspect]
     Active Substance: NAPROXEN SODIUM
     Indication: PAIN
     Dosage: 1 LIQUID GEL
     Route: 048
     Dates: start: 20171127, end: 20171127
  3. RAMIPRIL. [Concomitant]
     Active Substance: RAMIPRIL
  4. DILETIZEM 240MG [Concomitant]
     Dosage: STRENGTH: 240 MG

REACTIONS (3)
  - Fatigue [Not Recovered/Not Resolved]
  - Somnolence [Recovered/Resolved]
  - Hangover [Not Recovered/Not Resolved]

NARRATIVE: CASE EVENT DATE: 20171127
